FAERS Safety Report 8570390-7 (Version None)
Quarter: 2012Q3

REPORT INFORMATION
  Report Type: 
  Country: None (occurrence: None)
  Receive Date: 20120803
  Receipt Date: 20120730
  Transmission Date: 20120928
  Serious: Yes (Life-Threatening, Hospitalization, Disabling, Other)
  Sender: FDA-Public Use
  Company Number: CHPA2012DE016954

PATIENT
  Sex: Male

DRUGS (2)
  1. IBUPROFEN [Suspect]
     Indication: PAIN
     Dosage: 600 MG, TID
     Route: 048
  2. IBUPROFEN [Suspect]
     Indication: PAIN
     Dosage: 1 DF, QD
     Route: 061

REACTIONS (7)
  - DIASTOLIC DYSFUNCTION [None]
  - FLUID RETENTION [None]
  - HYPERTENSIVE HEART DISEASE [None]
  - HEART INJURY [None]
  - DRUG ADMINISTRATION ERROR [None]
  - OVERDOSE [None]
  - CARDIAC FAILURE [None]
